FAERS Safety Report 25524688 (Version 1)
Quarter: 2025Q3

REPORT INFORMATION
  Report Type: Spontaneous
  Country: US (occurrence: None)
  Receive Date: 20250705
  Receipt Date: 20250705
  Transmission Date: 20251021
  Serious: Yes (Other)
  Sender: FDA-CTU
  Company Number: None

PATIENT
  Age: 36 Year
  Sex: Male

DRUGS (7)
  1. ESCITALOPRAM [Suspect]
     Active Substance: ESCITALOPRAM OXALATE
     Indication: Depression
     Dosage: 1 TABLET(S) DAILY ORAL
     Route: 048
     Dates: start: 20090101, end: 20210105
  2. ESCITALOPRAM [Suspect]
     Active Substance: ESCITALOPRAM OXALATE
     Indication: Anxiety
  3. ESCITALOPRAM [Suspect]
     Active Substance: ESCITALOPRAM OXALATE
     Indication: Panic disorder
  4. VORTIOXETINE [Suspect]
     Active Substance: VORTIOXETINE
     Indication: Depression
     Dosage: 1 TABLET (S) DAILY ORAL ?
     Route: 048
     Dates: start: 20190103, end: 20240104
  5. VORTIOXETINE [Suspect]
     Active Substance: VORTIOXETINE
     Indication: Anxiety
  6. BUPROPION [Suspect]
     Active Substance: BUPROPION
  7. FISH OIL\OMEGA-3 FATTY ACIDS [Concomitant]
     Active Substance: FISH OIL\OMEGA-3 FATTY ACIDS

REACTIONS (14)
  - Therapy interrupted [None]
  - Withdrawal syndrome [None]
  - Anxiety [None]
  - Somnolence [None]
  - Emotional distress [None]
  - Loss of employment [None]
  - Educational problem [None]
  - Sexual dysfunction [None]
  - Genital paraesthesia [None]
  - Anorgasmia [None]
  - Taste disorder [None]
  - Parosmia [None]
  - Emotional disorder [None]
  - Sensory disturbance [None]

NARRATIVE: CASE EVENT DATE: 20220301
